FAERS Safety Report 15255217 (Version 1)
Quarter: 2018Q3

REPORT INFORMATION
  Report Type: Spontaneous
  Country: GB (occurrence: GB)
  Receive Date: 20180808
  Receipt Date: 20180808
  Transmission Date: 20181010
  Serious: Yes (Life-Threatening, Hospitalization, Other)
  Sender: FDA-Public Use
  Company Number: GB-PFIZER INC-2018246394

PATIENT
  Age: 5 Year
  Sex: Male

DRUGS (6)
  1. TREOSULFAN [Concomitant]
     Active Substance: TREOSULFAN
     Dosage: 12 MG/M2, UNK
  2. METHYLPREDNISOLONE. [Concomitant]
     Active Substance: METHYLPREDNISOLONE
     Dosage: 8 MG/KG, 1X/DAY
  3. FLUDARABINE [Concomitant]
     Active Substance: FLUDARABINE PHOSPHATE
     Dosage: 25 MG/M2, UNK
  4. MUROMONAB CD3 [Concomitant]
     Active Substance: MUROMONAB-CD3
     Dosage: 0.02 MG/KG, UNK
  5. FILGRASTIM [Suspect]
     Active Substance: FILGRASTIM
     Indication: NEUTROPENIA
     Dosage: UNK, 3 TIMES/WK
     Route: 065
  6. CYCLOSPORINE. [Concomitant]
     Active Substance: CYCLOSPORINE
     Indication: PROPHYLAXIS AGAINST GRAFT VERSUS HOST DISEASE
     Dosage: UNK

REACTIONS (13)
  - Bone marrow disorder [Unknown]
  - Thrombocytopenia [Recovered/Resolved]
  - Blood glucose abnormal [Unknown]
  - Splenomegaly [Unknown]
  - Infection [Recovering/Resolving]
  - Neutrophil count abnormal [Unknown]
  - Pulmonary haemorrhage [Recovered/Resolved]
  - Lower respiratory tract infection [Unknown]
  - Product use in unapproved indication [Unknown]
  - Blood uric acid abnormal [Unknown]
  - Device related sepsis [Unknown]
  - Blood lactic acid increased [Unknown]
  - Graft versus host disease [Unknown]
